FAERS Safety Report 16163817 (Version 1)
Quarter: 2019Q2

REPORT INFORMATION
  Report Type: Spontaneous
  Country: ES (occurrence: ES)
  Receive Date: 20190405
  Receipt Date: 20190405
  Transmission Date: 20190711
  Serious: Yes (Hospitalization)
  Sender: FDA-Public Use
  Company Number: ES-SA-2019SA085730

PATIENT
  Age: 69 Year
  Sex: Male

DRUGS (2)
  1. AFLIBERCEPT [Suspect]
     Active Substance: AFLIBERCEPT
     Dosage: 380 MG IV, EVERY 15 DAYS
     Route: 042
     Dates: start: 20190211, end: 20190211
  2. AFLIBERCEPT [Suspect]
     Active Substance: AFLIBERCEPT
     Indication: COLON CANCER
     Dosage: 380 MG IV, EVERY 15 DAYS
     Route: 042
     Dates: start: 20181217, end: 20190211

REACTIONS (1)
  - Cerebral artery thrombosis [Recovering/Resolving]

NARRATIVE: CASE EVENT DATE: 20190226
